FAERS Safety Report 24445130 (Version 1)
Quarter: 2024Q4

REPORT INFORMATION
  Report Type: Spontaneous
  Country: US (occurrence: None)
  Receive Date: 20241016
  Receipt Date: 20241016
  Transmission Date: 20250115
  Serious: Yes (Hospitalization)
  Sender: Public
  Company Number: None

PATIENT
  Sex: Female
  Weight: 103.4 kg

DRUGS (8)
  1. CYCLOPHOSPHAMIDE [Suspect]
     Active Substance: CYCLOPHOSPHAMIDE
  2. CYTARABINE [Suspect]
     Active Substance: CYTARABINE
  3. SPRYCEL [Suspect]
     Active Substance: DASATINIB
  4. DEXAMETHASONE [Suspect]
     Active Substance: DEXAMETHASONE
  5. DOXORUBICIN HYDROCHLORIDE [Suspect]
     Active Substance: DOXORUBICIN HYDROCHLORIDE
  6. MESNA [Suspect]
     Active Substance: MESNA
  7. METHOTREXATE [Suspect]
     Active Substance: METHOTREXATE
  8. VINCRISTINE SULFATE [Suspect]
     Active Substance: VINCRISTINE SULFATE

REACTIONS (7)
  - Anaemia [None]
  - Constipation [None]
  - Upper-airway cough syndrome [None]
  - Neutropenia [None]
  - Rhinorrhoea [None]
  - Myalgia [None]
  - Blood lactate dehydrogenase increased [None]

NARRATIVE: CASE EVENT DATE: 20240928
